FAERS Safety Report 9292652 (Version 1)
Quarter: 2013Q2

REPORT INFORMATION
  Report Type: Spontaneous
  Country: US (occurrence: None)
  Receive Date: 20130515
  Receipt Date: 20130515
  Transmission Date: 20140414
  Serious: Yes (Life-Threatening, Other)
  Sender: FDA-Public Use
  Company Number: None

PATIENT
  Sex: Male
  Weight: 85.73 kg

DRUGS (4)
  1. DEPAKENE [Suspect]
     Indication: MENTAL DISORDER
     Dosage: I DO NOT REMEMBER, N/A, N/A
     Dates: start: 20010911
  2. RESPERAL [Suspect]
     Dates: start: 20090911
  3. ABILIFY [Suspect]
  4. GEODON [Suspect]

REACTIONS (2)
  - Feeling hot [None]
  - Nausea [None]
